FAERS Safety Report 8531220-2 (Version None)
Quarter: 2012Q3

REPORT INFORMATION
  Report Type: 
  Country: None (occurrence: None)
  Receive Date: 20120710
  Receipt Date: 20120629
  Transmission Date: 20120928
  Serious: Yes (Hospitalization)
  Sender: FDA-Public Use
  Company Number: 2010003567

PATIENT
  Age: 81 Year
  Sex: Female

DRUGS (1)
  1. TARCEVA [Suspect]
     Indication: PANCREATIC CARCINOMA
     Dosage: 100 MG, UID/QD, ORAL
     Route: 048
     Dates: start: 20100818

REACTIONS (3)
  - BRONCHOSPASM [None]
  - DYSPNOEA [None]
  - RASH [None]
